FAERS Safety Report 5912983-9 (Version None)
Quarter: 2008Q4

REPORT INFORMATION
  Report Type: 
  Country: None (occurrence: None)
  Receive Date: 20081006
  Receipt Date: 20080923
  Transmission Date: 20090506
  Serious: Yes (Other)
  Sender: FDA-Public Use
  Company Number: 034270

PATIENT
  Age: 17 Year
  Sex: Female
  Weight: 52.2 kg

DRUGS (1)
  1. PLAN B [Suspect]
     Indication: POST COITAL CONTRACEPTION
     Dosage: 1 TABLET, ORAL
     Route: 048
     Dates: start: 20080922, end: 20080923

REACTIONS (3)
  - EPISTAXIS [None]
  - LOSS OF CONSCIOUSNESS [None]
  - PELVIC PAIN [None]
